FAERS Safety Report 22972738 (Version 2)
Quarter: 2025Q1

REPORT INFORMATION
  Report Type: Report from Study
  Country: US (occurrence: US)
  Receive Date: 20230922
  Receipt Date: 20250207
  Transmission Date: 20250409
  Serious: Yes (Other)
  Sender: ABBVIE
  Company Number: US-ABBVIE-5186287

PATIENT
  Age: 83 Year
  Sex: Female

DRUGS (2)
  1. HUMIRA [Suspect]
     Active Substance: ADALIMUMAB
     Indication: Rheumatoid arthritis
     Route: 058
     Dates: start: 20200617
  2. HUMIRA [Suspect]
     Active Substance: ADALIMUMAB
     Route: 058

REACTIONS (6)
  - Carpal tunnel syndrome [Unknown]
  - Fatigue [Unknown]
  - Memory impairment [Unknown]
  - Sciatica [Unknown]
  - Procedural pain [Unknown]
  - Arthritis [Unknown]
